FAERS Safety Report 8571023-6 (Version None)
Quarter: 2012Q3

REPORT INFORMATION
  Report Type: 
  Country: None (occurrence: None)
  Receive Date: 20120806
  Receipt Date: 20120723
  Transmission Date: 20120928
  Serious: Yes (Other)
  Sender: FDA-Public Use
  Company Number: CH-RANBAXY-2012RR-58718

PATIENT
  Age: 42 Year
  Sex: Female

DRUGS (1)
  1. TOPIRAMATE [Suspect]
     Indication: MIGRAINE PROPHYLAXIS
     Dosage: 400 MG DAILY
     Route: 065

REACTIONS (3)
  - HYPERCALCAEMIA [None]
  - NEPHROLITHIASIS [None]
  - RENAL TUBULAR ACIDOSIS [None]
